FAERS Safety Report 12304736 (Version 1)
Quarter: 2016Q2

REPORT INFORMATION
  Report Type: Spontaneous
  Country: NL (occurrence: NL)
  Receive Date: 20160426
  Receipt Date: 20160426
  Transmission Date: 20160815
  Serious: Yes (Other)
  Sender: FDA-Public Use
  Company Number: NL-AMGEN-NLDSP2016052370

PATIENT
  Age: 17 Year
  Sex: Female

DRUGS (3)
  1. METHOTREXAAT                       /00113801/ [Concomitant]
     Active Substance: METHOTREXATE SODIUM
     Indication: RHEUMATOID ARTHRITIS
     Dosage: SMALL AMOUNT
     Route: 030
  2. ENBREL [Suspect]
     Active Substance: ETANERCEPT
     Indication: RHEUMATOID ARTHRITIS
     Dosage: UNK
     Route: 030
  3. FOLIC ACID. [Concomitant]
     Active Substance: FOLIC ACID
     Dosage: UNK

REACTIONS (7)
  - Influenza [Unknown]
  - Injection site erythema [Unknown]
  - Abasia [Unknown]
  - Burning sensation [Unknown]
  - Incorrect route of drug administration [Unknown]
  - Injection site reaction [Unknown]
  - Peripheral swelling [Unknown]
